FAERS Safety Report 6904883-2 (Version None)
Quarter: 2010Q3

REPORT INFORMATION
  Report Type: 
  Country: None (occurrence: None)
  Receive Date: 20100804
  Receipt Date: 20090724
  Transmission Date: 20110219
  Serious: No
  Sender: FDA-Public Use
  Company Number: US-PFIZER INC-2009246384

PATIENT
  Sex: Female

DRUGS (3)
  1. LYRICA [Suspect]
     Dosage: 150 MG, 3X/DAY
     Dates: start: 20090401
  2. OXYCODONE [Concomitant]
  3. NEURONTIN [Concomitant]

REACTIONS (1)
  - SEDATION [None]
